FAERS Safety Report 10899160 (Version 1)
Quarter: 2015Q1

REPORT INFORMATION
  Report Type: Other
  Country: GB (occurrence: GB)
  Receive Date: 20150309
  Receipt Date: 20150309
  Transmission Date: 20150721
  Serious: Yes (Other)
  Sender: FDA-Public Use
  Company Number: GB-APOTEX-2015AP007197

PATIENT
  Age: 3 Year
  Sex: Male
  Weight: 19.25 kg

DRUGS (1)
  1. MONTELUKAST [Suspect]
     Active Substance: MONTELUKAST SODIUM
     Indication: ASTHMA
     Dosage: 4 MG, UNK
     Route: 048
     Dates: start: 20150202, end: 20150204

REACTIONS (2)
  - Nephrotic syndrome [Unknown]
  - Swelling [Unknown]

NARRATIVE: CASE EVENT DATE: 201502
